FAERS Safety Report 24709839 (Version 1)
Quarter: 2024Q4

REPORT INFORMATION
  Report Type: Spontaneous
  Country: DE (occurrence: DE)
  Receive Date: 20241209
  Receipt Date: 20241209
  Transmission Date: 20250115
  Serious: Yes (Other)
  Sender: TEVA
  Company Number: DE-TEVA-VS-3272378

PATIENT
  Sex: Male

DRUGS (3)
  1. QUETIAPINE [Suspect]
     Active Substance: QUETIAPINE
     Indication: Product used for unknown indication
     Dosage: ABZ RETARDTABLETTEN
     Route: 048
  2. QUETIAPINE [Suspect]
     Active Substance: QUETIAPINE
     Indication: Product used for unknown indication
     Dosage: ABZ RETARDTABLETTEN
     Route: 048
  3. QUETIAPINE [Suspect]
     Active Substance: QUETIAPINE
     Indication: Product used for unknown indication
     Dosage: ABZ RETARDTABLETTEN
     Route: 048

REACTIONS (7)
  - Drug dependence [Unknown]
  - Therapeutic product effect decreased [Unknown]
  - Tremor [Unknown]
  - Disturbance in attention [Unknown]
  - Restlessness [Unknown]
  - Impaired work ability [Unknown]
  - Impaired quality of life [Unknown]
